FAERS Safety Report 9018555 (Version 2)
Quarter: 2013Q1

REPORT INFORMATION
  Report Type: Spontaneous
  Country: US (occurrence: US)
  Receive Date: 20130118
  Receipt Date: 20130201
  Transmission Date: 20140127
  Serious: No
  Sender: FDA-Public Use
  Company Number: US-PFIZER INC-2013014942

PATIENT
  Sex: Male

DRUGS (5)
  1. BOSULIF [Suspect]
     Indication: CHRONIC MYELOID LEUKAEMIA
     Dosage: 500 MG, DAILY
     Route: 048
     Dates: start: 20121101, end: 20130103
  2. BOSULIF [Suspect]
     Indication: REFRACTORY CANCER
  3. RISPERIDONE [Concomitant]
     Dosage: UNK
  4. FLUPHENAZINE [Concomitant]
     Dosage: UNK
  5. BENZTROPINE [Concomitant]
     Dosage: UNK

REACTIONS (2)
  - Disease progression [Unknown]
  - Chronic myeloid leukaemia [Unknown]
